FAERS Safety Report 6369889-3 (Version None)
Quarter: 2009Q3

REPORT INFORMATION
  Report Type: 
  Country: None (occurrence: None)
  Receive Date: 20090923
  Receipt Date: 20070705
  Transmission Date: 20100115
  Serious: Yes (Other)
  Sender: FDA-Public Use
  Company Number: US-ASTRAZENECA-2006UW11543

PATIENT
  Age: 43 Year
  Sex: Female
  Weight: 77.1 kg

DRUGS (20)
  1. SEROQUEL [Suspect]
     Indication: SCHIZOPHRENIA
     Dosage: 200-900 MG (FLUCTUATING)
     Route: 048
     Dates: start: 20040209
  2. SEROQUEL [Suspect]
     Indication: BIPOLAR DISORDER
     Dosage: 200-900 MG (FLUCTUATING)
     Route: 048
     Dates: start: 20040209
  3. SEROQUEL [Suspect]
     Indication: DEPRESSION
     Dosage: 200-900 MG (FLUCTUATING)
     Route: 048
     Dates: start: 20040209
  4. SEROQUEL [Suspect]
     Route: 048
  5. SEROQUEL [Suspect]
     Route: 048
  6. SEROQUEL [Suspect]
     Route: 048
  7. GEODON [Concomitant]
  8. HALDOL [Concomitant]
  9. THORAZINE [Concomitant]
  10. ZYPREXA [Concomitant]
  11. HEROIN [Concomitant]
     Dates: start: 20030101
  12. METHADONE HCL [Concomitant]
     Dates: start: 20030101
  13. DIAZEPAM [Concomitant]
     Route: 048
     Dates: start: 20040209
  14. TRAZODONE [Concomitant]
     Route: 048
     Dates: start: 20041007
  15. PROPRANOLOL [Concomitant]
     Dosage: 20 MG
     Route: 048
     Dates: start: 20041007
  16. SUBOXONE [Concomitant]
     Route: 048
     Dates: start: 20061116
  17. CITALOPRAM HYDROBROMIDE [Concomitant]
     Route: 048
     Dates: start: 20061116
  18. CLONIDINE [Concomitant]
     Route: 048
     Dates: start: 20061116
  19. LITHIUM [Concomitant]
     Route: 048
  20. CELEXA [Concomitant]
     Route: 048

REACTIONS (1)
  - PANCREATITIS [None]
